FAERS Safety Report 16785145 (Version 1)
Quarter: 2019Q4

REPORT INFORMATION
  Report Type: Spontaneous
  Country: US (occurrence: US)
  Receive Date: 20190907
  Receipt Date: 20190907
  Transmission Date: 20200122
  Serious: Yes (Death, Life-Threatening, Hospitalization)
  Sender: FDA-Public Use
  Company Number: None

PATIENT
  Age: 77 Year
  Sex: Female
  Weight: 64.8 kg

DRUGS (2)
  1. ANDEXXA [Suspect]
     Active Substance: ANDEXANET ALFA
     Indication: HAEMORRHAGE
     Dosage: ?          OTHER FREQUENCY:ONCE;?
     Route: 042
     Dates: start: 20190906, end: 20190906
  2. NICARDIPINE [Concomitant]
     Active Substance: NICARDIPINE
     Dates: start: 20190906, end: 20190907

REACTIONS (2)
  - Acute myocardial infarction [None]
  - Intraventricular haemorrhage [None]

NARRATIVE: CASE EVENT DATE: 20190906
